FAERS Safety Report 12208311 (Version 2)
Quarter: 2017Q3

REPORT INFORMATION
  Report Type: Spontaneous
  Country: US (occurrence: US)
  Receive Date: 20160324
  Receipt Date: 20170823
  Transmission Date: 20171127
  Serious: Yes (Other)
  Sender: FDA-Public Use
  Company Number: US-TEVA-645396USA

PATIENT
  Age: 46 Year
  Sex: Female

DRUGS (3)
  1. COPAXONE [Suspect]
     Active Substance: GLATIRAMER ACETATE
     Indication: MULTIPLE SCLEROSIS
     Route: 058
  2. MULTIVITAMIN [Concomitant]
     Active Substance: VITAMINS
     Dosage: UNKNOWN FORM STRENGTH
     Route: 065
  3. VITAMIN D [Concomitant]
     Active Substance: CHOLECALCIFEROL
     Dosage: UNKNOWN
     Route: 065

REACTIONS (5)
  - Injection site infection [Recovering/Resolving]
  - Skin irritation [Not Recovered/Not Resolved]
  - Thermal burn [Recovered/Resolved]
  - Injection site cellulitis [Recovering/Resolving]
  - Scar [Recovering/Resolving]

NARRATIVE: CASE EVENT DATE: 20160120
